FAERS Safety Report 24546196 (Version 1)
Quarter: 2024Q4

REPORT INFORMATION
  Report Type: Spontaneous
  Country: CA (occurrence: CA)
  Receive Date: 20241024
  Receipt Date: 20241024
  Transmission Date: 20250115
  Serious: Yes (Hospitalization)
  Sender: TEVA
  Company Number: CA-TEVA-VS-3255015

PATIENT
  Age: 86 Year
  Sex: Male

DRUGS (1)
  1. SPIRONOLACTONE [Suspect]
     Active Substance: SPIRONOLACTONE
     Indication: Product used for unknown indication
     Dosage: TEVA-SPIRONOLACTONE
     Route: 065

REACTIONS (1)
  - Hyperkalaemia [Unknown]
